FAERS Safety Report 16740671 (Version 1)
Quarter: 2019Q4

REPORT INFORMATION
  Report Type: Spontaneous
  Country: US (occurrence: US)
  Receive Date: 20190824
  Receipt Date: 20190824
  Transmission Date: 20200122
  Serious: No
  Sender: FDA-Public Use
  Company Number: None

PATIENT
  Age: 25 Year
  Sex: Female

DRUGS (5)
  1. BREO ELLIPTA [Suspect]
     Active Substance: FLUTICASONE FUROATE\VILANTEROL TRIFENATATE
     Indication: ASTHMA
     Dosage: ?          OTHER STRENGTH:MCG;QUANTITY:1 INHALATION(S);?
     Route: 055
     Dates: start: 20190611, end: 20190823
  2. RESETTING EYE DROPS [Concomitant]
  3. ZANTAC 150MG X 2, [Concomitant]
  4. ZADITOR EYE DROPS [Concomitant]
  5. SPRINTEC 28; [Concomitant]

REACTIONS (7)
  - Discomfort [None]
  - Mouth swelling [None]
  - Palatal disorder [None]
  - Gingival oedema [None]
  - Oedema [None]
  - Blister [None]
  - Dysphonia [None]

NARRATIVE: CASE EVENT DATE: 20190821
